FAERS Safety Report 25821463 (Version 2)
Quarter: 2025Q4

REPORT INFORMATION
  Report Type: Spontaneous
  Country: BR (occurrence: BR)
  Receive Date: 20250919
  Receipt Date: 20251017
  Transmission Date: 20260118
  Serious: Yes (Other)
  Sender: TAKEDA
  Company Number: BR-JNJFOC-20250921512

PATIENT
  Age: 69 Year
  Sex: Female
  Weight: 62 kg

DRUGS (2)
  1. VELCADE [Suspect]
     Active Substance: BORTEZOMIB
     Indication: Plasma cell myeloma
     Dosage: UNK
  2. DEXAMETHASONE [Suspect]
     Active Substance: DEXAMETHASONE
     Indication: Plasma cell myeloma
     Dosage: UNK

REACTIONS (2)
  - Myocardial injury [Recovering/Resolving]
  - Transplant [Unknown]

NARRATIVE: CASE EVENT DATE: 20180101
